FAERS Safety Report 6774336-3 (Version None)
Quarter: 2010Q2

REPORT INFORMATION
  Report Type: 
  Country: None (occurrence: None)
  Receive Date: 20100617
  Receipt Date: 20100607
  Transmission Date: 20101027
  Serious: Yes (Hospitalization)
  Sender: FDA-Public Use
  Company Number: JP-JNJFOC-20100604230

PATIENT
  Sex: Male
  Weight: 62 kg

DRUGS (8)
  1. LOPEMIN [Suspect]
     Indication: DIARRHOEA
     Route: 048
  2. TOPOTECAN [Suspect]
     Indication: LUNG NEOPLASM MALIGNANT
     Dosage: INTERMITTENT
     Route: 041
  3. TOPOTECAN [Suspect]
     Route: 041
  4. RANDA [Suspect]
     Indication: LUNG NEOPLASM MALIGNANT
     Route: 042
  5. NU-LOTAN [Concomitant]
  6. DOXAZOSIN MESYLATE [Concomitant]
     Route: 065
  7. ADALAT CC [Concomitant]
     Route: 065
  8. GASTER D [Concomitant]
     Route: 065

REACTIONS (2)
  - NEUTROPENIA [None]
  - RASH ERYTHEMATOUS [None]
